FAERS Safety Report 9401092 (Version 1)
Quarter: 2013Q3

REPORT INFORMATION
  Report Type: Spontaneous
  Country: US (occurrence: US)
  Receive Date: 20130715
  Receipt Date: 20130715
  Transmission Date: 20140515
  Serious: No
  Sender: FDA-Public Use
  Company Number: US-BAYER-2013-085187

PATIENT
  Sex: Female

DRUGS (1)
  1. SKYLA [Suspect]
     Indication: CONTRACEPTION
     Dosage: 14 ?G/D, CONT
     Route: 015
     Dates: start: 20130618, end: 20130618

REACTIONS (3)
  - Procedural pain [None]
  - Device difficult to use [None]
  - Unevaluable event [None]
